FAERS Safety Report 4659425-1 (Version None)
Quarter: 2005Q2

REPORT INFORMATION
  Report Type: 
  Country: None (occurrence: None)
  Receive Date: 20050412
  Receipt Date: 20050119
  Transmission Date: 20051028
  Serious: No
  Sender: FDA-Public Use
  Company Number: 2005S1000015

PATIENT
  Sex: 0

DRUGS (30)
  1. CUBICIN [Suspect]
     Dosage: 700 MG; Q24H; IV
     Route: 042
     Dates: start: 20041122, end: 20041128
  2. HEPARIN [Concomitant]
  3. WARFARIN SODIUM [Concomitant]
  4. DARBEPOETIN [Concomitant]
  5. SURGICAL HEMOSTAT [Concomitant]
  6. AMLODIPINE [Concomitant]
  7. CLOPIDOGREL BISULFATE [Concomitant]
  8. ASPIRIN [Concomitant]
  9. FUROSEMIDE [Concomitant]
  10. NIZATIDINE [Concomitant]
  11. PANTOPRAZOLE [Concomitant]
  12. BISACODYL [Concomitant]
  13. DOCUSATE SODIUM [Concomitant]
  14. ALPRAZOLAM [Concomitant]
  15. ESCITALOPRAM OXALATE [Concomitant]
  16. MIRTAZAPINE [Concomitant]
  17. MORPHINE [Concomitant]
  18. PERCOCET [Concomitant]
  19. DIPHENHYDRAMINE HCL [Concomitant]
  20. ALBUMIN (HUMAN) [Concomitant]
  21. CALCIUM GLUCONATE [Concomitant]
  22. FERROUS SULFATE [Concomitant]
  23. POTASSIUM CHLORIDE [Concomitant]
  24. MAGNESIUM OXIDE [Concomitant]
  25. MAGNESIUM SULFATE [Concomitant]
  26. DAKINS SOLUTION [Concomitant]
  27. CEFEPIME [Concomitant]
  28. METRONIDAZOLE [Concomitant]
  29. VANCOMYCIN [Concomitant]
  30. VORICONAZOLE [Concomitant]

REACTIONS (1)
  - INTERNATIONAL NORMALISED RATIO INCREASED [None]
